FAERS Safety Report 7145221-2 (Version None)
Quarter: 2010Q4

REPORT INFORMATION
  Report Type: 
  Country: None (occurrence: None)
  Receive Date: 20101208
  Receipt Date: 20101130
  Transmission Date: 20110411
  Serious: Yes (Other)
  Sender: FDA-Public Use
  Company Number: US-PFIZER INC-2010161363

PATIENT
  Sex: Female
  Weight: 69.399 kg

DRUGS (9)
  1. TOVIAZ [Suspect]
     Indication: URINARY INCONTINENCE
     Dosage: 4 MG, 1X/DAY
     Route: 048
     Dates: start: 20100901
  2. DOXIL [Concomitant]
     Dosage: FREQUENCY: EVERY 4 WEEKS
     Route: 042
  3. AREDIA [Concomitant]
     Dosage: FREQUENCY: EVERY 6 WEEKS,
     Route: 042
  4. NEURONTIN [Concomitant]
     Dosage: FREQUENCY: 4 TIMES DAILY,
  5. WARFARIN [Concomitant]
     Dosage: 5 MG, 1X/DAY
  6. CALCIUM [Concomitant]
     Dosage: 1200 MG, 1X/DAY
  7. VITAMIN D [Concomitant]
     Dosage: UNIT DOSE: 1000;
  8. ATIVAN [Concomitant]
     Indication: AGITATION
     Dosage: FREQUENCY: AS NEEDED,
  9. ATIVAN [Concomitant]
     Indication: INSOMNIA

REACTIONS (1)
  - NOCTURIA [None]
